FAERS Safety Report 17326583 (Version 2)
Quarter: 2021Q1

REPORT INFORMATION
  Report Type: Spontaneous
  Country: US (occurrence: US)
  Receive Date: 20200127
  Receipt Date: 20210122
  Transmission Date: 20210419
  Serious: Yes (Other)
  Sender: FDA-Public Use
  Company Number: US-PIRAMAL ENTERPRISES LIMITED-2019-PEL-000151

PATIENT

DRUGS (3)
  1. GABLOFEN [Suspect]
     Active Substance: BACLOFEN
     Indication: MUSCLE SPASTICITY
     Dosage: 77 MICROGRAM PER DAY
     Route: 037
  2. GABLOFEN [Suspect]
     Active Substance: BACLOFEN
     Dosage: 74 MICROGRAM PER DAY
     Route: 037
  3. GABLOFEN [Suspect]
     Active Substance: BACLOFEN
     Indication: PRODUCT USED FOR UNKNOWN INDICATION
     Dosage: 100 MICROGRAMS PER DAY
     Route: 037

REACTIONS (8)
  - Cerebrospinal fluid leakage [Recovered/Resolved]
  - Implant site extravasation [Recovered/Resolved]
  - Device issue [Recovered/Resolved]
  - Weight decreased [Recovered/Resolved]
  - Device issue [Recovered/Resolved]
  - Muscle spasticity [Recovered/Resolved]
  - Muscle spasticity [Recovered/Resolved]
  - Device inversion [Recovered/Resolved]

NARRATIVE: CASE EVENT DATE: 201812
